FAERS Safety Report 17075056 (Version 1)
Quarter: 2019Q4

REPORT INFORMATION
  Report Type: Spontaneous
  Country: JP (occurrence: JP)
  Receive Date: 20191126
  Receipt Date: 20191126
  Transmission Date: 20200122
  Serious: Yes (Other)
  Sender: FDA-Public Use
  Company Number: JP-PFIZER INC-2019501935

PATIENT
  Age: 45 Year
  Sex: Male

DRUGS (2)
  1. CHAMPIX [Suspect]
     Active Substance: VARENICLINE TARTRATE
     Dosage: UNK
     Route: 048
     Dates: start: 20190817, end: 20190901
  2. CHAMPIX [Suspect]
     Active Substance: VARENICLINE TARTRATE
     Dosage: 1 MG, 2X/DAY
     Route: 048
     Dates: start: 20190902

REACTIONS (6)
  - Deafness unilateral [Recovered/Resolved]
  - Oculomucocutaneous syndrome [Recovered/Resolved]
  - Depression [Recovered/Resolved]
  - Stomatitis [Recovered/Resolved]
  - Parosmia [Recovered/Resolved]
  - Hypogeusia [Recovered/Resolved]
